FAERS Safety Report 15121337 (Version 1)
Quarter: 2018Q3

REPORT INFORMATION
  Report Type: Spontaneous
  Country: GB (occurrence: GB)
  Receive Date: 20180709
  Receipt Date: 20180709
  Transmission Date: 20181010
  Serious: Yes (Life-Threatening)
  Sender: FDA-Public Use
  Company Number: GB-PFIZER INC-2018271957

PATIENT
  Age: 21 Year
  Sex: Female
  Weight: 67 kg

DRUGS (1)
  1. SAYANA PRESS [Suspect]
     Active Substance: MEDROXYPROGESTERONE\MEDROXYPROGESTERONE ACETATE
     Indication: CONTRACEPTION
     Dosage: 1 DF, UNK
     Route: 051
     Dates: start: 20180410, end: 20180410

REACTIONS (2)
  - Suicidal ideation [Not Recovered/Not Resolved]
  - Depression suicidal [Not Recovered/Not Resolved]
